FAERS Safety Report 4452604-8 (Version None)
Quarter: 2004Q3

REPORT INFORMATION
  Report Type: 
  Country: None (occurrence: None)
  Receive Date: 20040916
  Receipt Date: 20040902
  Transmission Date: 20050211
  Serious: Yes (Hospitalization)
  Sender: FDA-Public Use
  Company Number: 04P-007-0272715-00

PATIENT
  Age: 49 Year
  Sex: Female

DRUGS (5)
  1. VALCOTE (DEPAKOTE) (DIVALOPROEX SODIUM) (DIVALOPROEX SODIUM) [Suspect]
     Indication: EPILEPSY
     Dosage: 500 MG, 2 IN 1 D, PER ORAL; 1250 MG, 1 IN 1 D, PER ORAL; 500 MG, 1 IN 1 D
     Route: 048
     Dates: start: 20040730, end: 20040806
  2. VALCOTE (DEPAKOTE) (DIVALOPROEX SODIUM) (DIVALOPROEX SODIUM) [Suspect]
     Indication: EPILEPSY
     Dosage: 500 MG, 2 IN 1 D, PER ORAL; 1250 MG, 1 IN 1 D, PER ORAL; 500 MG, 1 IN 1 D
     Route: 048
     Dates: start: 20040806, end: 20040816
  3. VALCOTE (DEPAKOTE) (DIVALOPROEX SODIUM) (DIVALOPROEX SODIUM) [Suspect]
     Indication: EPILEPSY
     Dosage: 500 MG, 2 IN 1 D, PER ORAL; 1250 MG, 1 IN 1 D, PER ORAL; 500 MG, 1 IN 1 D
     Route: 048
     Dates: start: 20040816
  4. PHENOBARBITAL TAB [Concomitant]
  5. CARBAMAZEPINE [Concomitant]

REACTIONS (6)
  - AGGRESSION [None]
  - CONFUSIONAL STATE [None]
  - CONVERSION DISORDER [None]
  - HALLUCINATION [None]
  - NERVOUSNESS [None]
  - SEXUAL ACTIVITY INCREASED [None]
